FAERS Safety Report 25758801 (Version 1)
Quarter: 2025Q3

REPORT INFORMATION
  Report Type: Spontaneous
  Country: EU (occurrence: EU)
  Receive Date: 20250904
  Receipt Date: 20250904
  Transmission Date: 20251021
  Serious: Yes (Other)
  Sender: SAMSUNG BIOEPIS
  Company Number: EU-SAMSUNG BIOEPIS-SB-2025-29497

PATIENT
  Age: 60 Year
  Sex: Male
  Weight: 64 kg

DRUGS (6)
  1. TRASTUZUMAB [Suspect]
     Active Substance: TRASTUZUMAB
     Indication: Oesophageal adenocarcinoma
     Dosage: DAY 1: 8MG/KG, IV, 6MG/KG IV, DAY 22/DAY43 PRE AND POST OP, AFTERWARDS 6MG/KG IV DAY 1 EVERY 3 WEEKS
     Route: 042
     Dates: start: 20230425
  2. PEMBROLIZUMAB [Suspect]
     Active Substance: PEMBROLIZUMAB
     Indication: Product used for unknown indication
     Dosage: 200MG FLAT DOSE, IV DAY 1/DAY22/ DAY43 PRE AND POST OP, AFTERWARDS DAY 1 EVERY 3 WEEKS; LAST DOSE GI
     Route: 042
     Dates: start: 20230425
  3. OXALIPLATIN [Suspect]
     Active Substance: OXALIPLATIN
     Indication: Product used for unknown indication
     Route: 042
     Dates: start: 20230425
  4. LEUCOVORIN [Suspect]
     Active Substance: LEUCOVORIN\LEUCOVORIN CALCIUM
     Indication: Product used for unknown indication
     Route: 042
     Dates: start: 20230425, end: 20230607
  5. FLUOROURACIL [Suspect]
     Active Substance: FLUOROURACIL
     Indication: Product used for unknown indication
     Route: 042
     Dates: start: 20230425
  6. DOCETAXEL [Suspect]
     Active Substance: DOCETAXEL
     Indication: Product used for unknown indication
     Route: 042
     Dates: start: 20230425

REACTIONS (5)
  - Gastrointestinal stromal tumour [Recovered/Resolved]
  - Pneumonia [Not Recovered/Not Resolved]
  - Tracheal fistula [Not Recovered/Not Resolved]
  - Fibrinous bronchitis [Not Recovered/Not Resolved]
  - Off label use [Unknown]

NARRATIVE: CASE EVENT DATE: 20230905
